FAERS Safety Report 11336029 (Version 2)
Quarter: 2015Q3

REPORT INFORMATION
  Report Type: Spontaneous
  Country: US (occurrence: US)
  Receive Date: 20150804
  Receipt Date: 20150806
  Transmission Date: 20151125
  Serious: No
  Sender: FDA-Public Use
  Company Number: US-TEVA-583666ACC

PATIENT
  Age: 19 Year
  Sex: Female
  Weight: 56.75 kg

DRUGS (1)
  1. PLAN B ONE-STEP [Suspect]
     Active Substance: LEVONORGESTREL
     Indication: POST COITAL CONTRACEPTION
     Dosage: 1.5 MILLIGRAM DAILY;
     Route: 048
     Dates: start: 20150724, end: 20150724

REACTIONS (3)
  - Nausea [Not Recovered/Not Resolved]
  - Dizziness [Recovered/Resolved]
  - Dysmenorrhoea [Not Recovered/Not Resolved]

NARRATIVE: CASE EVENT DATE: 20150724
